FAERS Safety Report 6833411-5 (Version None)
Quarter: 2010Q3

REPORT INFORMATION
  Report Type: 
  Country: None (occurrence: None)
  Receive Date: 20100712
  Receipt Date: 20100703
  Transmission Date: 20110219
  Serious: Yes (Death, Other)
  Sender: FDA-Public Use
  Company Number: US-AMGEN-QUU419916

PATIENT
  Age: 93 Year
  Sex: Female

DRUGS (10)
  1. ARANESP [Suspect]
     Indication: RENAL FAILURE CHRONIC
  2. EPOGEN [Suspect]
     Indication: RENAL FAILURE CHRONIC
     Dates: end: 20100513
  3. COZAAR [Concomitant]
  4. HCT [Concomitant]
  5. NORVASC [Concomitant]
  6. TOPROL-XL [Concomitant]
  7. SYNTHROID [Concomitant]
  8. LIPITOR [Concomitant]
  9. PAXIL [Concomitant]
  10. HYDRALAZINE HCL [Concomitant]
     Dates: start: 20100511, end: 20100513

REACTIONS (3)
  - MYOCARDIAL INFARCTION [None]
  - PULMONARY OEDEMA [None]
  - RENAL FAILURE [None]
